FAERS Safety Report 7159110-0 (Version None)
Quarter: 2010Q4

REPORT INFORMATION
  Report Type: 
  Country: None (occurrence: None)
  Receive Date: 20101214
  Receipt Date: 20100727
  Transmission Date: 20110411
  Serious: No
  Sender: FDA-Public Use
  Company Number: US-ASTRAZENECA-2010SE35028

PATIENT
  Sex: Female

DRUGS (2)
  1. CRESTOR [Suspect]
     Route: 048
     Dates: start: 20100601
  2. CALCIUM [Concomitant]

REACTIONS (3)
  - AMNESIA [None]
  - DRUG DOSE OMISSION [None]
  - PAIN [None]
